FAERS Safety Report 6624738-0 (Version None)
Quarter: 2010Q1

REPORT INFORMATION
  Report Type: 
  Country: None (occurrence: None)
  Receive Date: 20100310
  Receipt Date: 20100301
  Transmission Date: 20100710
  Serious: Yes (Other)
  Sender: FDA-Public Use
  Company Number: JP-NOVOPROD-305086

PATIENT
  Sex: Female

DRUGS (1)
  1. NORDITROPIN NORDIFLEX [Suspect]
     Indication: CHONDRODYSTROPHY
     Dosage: UNKNOWN/SC

REACTIONS (1)
  - SLEEP APNOEA SYNDROME [None]
